FAERS Safety Report 24168296 (Version 1)
Quarter: 2024Q3

REPORT INFORMATION
  Report Type: Spontaneous
  Country: US (occurrence: US)
  Receive Date: 20240802
  Receipt Date: 20240802
  Transmission Date: 20241017
  Serious: Yes (Death, Hospitalization, Other)
  Sender: DR REDDYS
  Company Number: US-DRL-USA-LIT/USA/24/0011103

PATIENT
  Age: 31 Year
  Sex: Female

DRUGS (3)
  1. SIROLIMUS [Suspect]
     Active Substance: SIROLIMUS
     Indication: Prophylaxis against transplant rejection
  2. AZATHIOPRINE [Suspect]
     Active Substance: AZATHIOPRINE
     Indication: Prophylaxis against transplant rejection
  3. PREDNISONE [Suspect]
     Active Substance: PREDNISONE
     Indication: Prophylaxis against transplant rejection

REACTIONS (5)
  - Respiratory failure [Fatal]
  - Organising pneumonia [Unknown]
  - Drug ineffective for unapproved indication [Unknown]
  - COVID-19 [Unknown]
  - Acute respiratory distress syndrome [Unknown]
